FAERS Safety Report 7059892-2 (Version None)
Quarter: 2010Q4

REPORT INFORMATION
  Report Type: 
  Country: None (occurrence: None)
  Receive Date: 20101025
  Receipt Date: 20101019
  Transmission Date: 20110411
  Serious: Yes (Hospitalization)
  Sender: FDA-Public Use
  Company Number: PHHO2010LV15935

PATIENT
  Sex: Male
  Weight: 64 kg

DRUGS (2)
  1. ACZ885 ACZ+ [Suspect]
     Indication: GOUT
     Dosage: 150MG
     Route: 058
     Dates: start: 20100819
  2. SERETIDE [Concomitant]
     Indication: CHRONIC OBSTRUCTIVE PULMONARY DISEASE
     Dosage: UNK

REACTIONS (1)
  - PNEUMONIA [None]
